FAERS Safety Report 7370712-9 (Version None)
Quarter: 2011Q1

REPORT INFORMATION
  Report Type: 
  Country: None (occurrence: None)
  Receive Date: 20110323
  Receipt Date: 20110318
  Transmission Date: 20110831
  Serious: No
  Sender: FDA-Public Use
  Company Number: US-BAYER-2011-025092

PATIENT
  Sex: Female

DRUGS (1)
  1. ASPIRIN [Suspect]
     Indication: PRE-ECLAMPSIA
     Dosage: 1 DF, QD
     Route: 048

REACTIONS (2)
  - SWELLING [None]
  - BLOOD PRESSURE INCREASED [None]
